FAERS Safety Report 5007362-5 (Version None)
Quarter: 2006Q2

REPORT INFORMATION
  Report Type: 
  Country: None (occurrence: None)
  Receive Date: 20060517
  Receipt Date: 20060504
  Transmission Date: 20061013
  Serious: Yes (Hospitalization, Other)
  Sender: FDA-Public Use
  Company Number: 2006-140404-NL

PATIENT
  Age: 23 Year
  Sex: Female

DRUGS (1)
  1. NUVARING [Suspect]

REACTIONS (4)
  - ALOPECIA [None]
  - PULMONARY EMBOLISM [None]
  - VISION BLURRED [None]
  - VISUAL ACUITY REDUCED [None]
